FAERS Safety Report 20553318 (Version 2)
Quarter: 2022Q2

REPORT INFORMATION
  Report Type: Spontaneous
  Country: US (occurrence: US)
  Receive Date: 20220304
  Receipt Date: 20220407
  Transmission Date: 20220721
  Serious: No
  Sender: FDA-Public Use
  Company Number: US-PFIZER INC-2021582716

PATIENT
  Sex: Female

DRUGS (1)
  1. ACCUPRIL [Suspect]
     Active Substance: QUINAPRIL HYDROCHLORIDE
     Indication: Headache
     Dosage: 40 MG, 2X/DAY

REACTIONS (5)
  - Pain [Unknown]
  - Condition aggravated [Unknown]
  - Arthritis [Unknown]
  - Drug effective for unapproved indication [Unknown]
  - Off label use [Unknown]
